FAERS Safety Report 21189141 (Version 1)
Quarter: 2022Q3

REPORT INFORMATION
  Report Type: Spontaneous
  Country: CA (occurrence: CA)
  Receive Date: 20220809
  Receipt Date: 20220809
  Transmission Date: 20221027
  Serious: Yes (Other)
  Sender: FDA-Public Use
  Company Number: CA-BAXTER-2022BAX016732

PATIENT
  Age: 33 Year
  Sex: Female

DRUGS (19)
  1. IFOSFAMIDE [Suspect]
     Active Substance: IFOSFAMIDE
     Indication: Disease recurrence
     Dosage: 1500 MG/M2
     Route: 041
  2. IFOSFAMIDE [Suspect]
     Active Substance: IFOSFAMIDE
     Indication: Angiocentric lymphoma
  3. MESNA [Suspect]
     Active Substance: MESNA
     Indication: Disease recurrence
     Dosage: 300 MG/M2, DOSAGE FORM: NOT SPECIFIED
     Route: 041
  4. MESNA [Suspect]
     Active Substance: MESNA
     Indication: Angiocentric lymphoma
  5. BRENTUXIMAB VEDOTIN [Suspect]
     Active Substance: BRENTUXIMAB VEDOTIN
     Indication: Disease recurrence
     Dosage: 1.8 MG/KG, 1 EVERY 3 WEEKS
     Route: 065
  6. BRENTUXIMAB VEDOTIN [Suspect]
     Active Substance: BRENTUXIMAB VEDOTIN
     Indication: Angiocentric lymphoma
  7. DEXAMETHASONE [Suspect]
     Active Substance: DEXAMETHASONE
     Indication: Disease recurrence
     Dosage: 40 MILLIGRAM, DOSAGE FORM: NOT SPECIFIED
     Route: 065
  8. DEXAMETHASONE [Suspect]
     Active Substance: DEXAMETHASONE
     Indication: Angiocentric lymphoma
  9. ETOPOSIDE [Suspect]
     Active Substance: ETOPOSIDE
     Indication: Disease recurrence
     Dosage: 100 MG/M2, DOSAGE FORM: NOT SPECIFIED
     Route: 041
  10. ETOPOSIDE [Suspect]
     Active Substance: ETOPOSIDE
     Indication: Angiocentric lymphoma
  11. ASPARAGINASE [Suspect]
     Active Substance: ASPARAGINASE
     Indication: Disease recurrence
     Dosage: DOSAGE FORM: POWDER FOR SOLUTION INTRAMUSCULAR
     Route: 030
  12. ASPARAGINASE [Suspect]
     Active Substance: ASPARAGINASE
     Indication: Angiocentric lymphoma
  13. LEUCOVORIN [Suspect]
     Active Substance: LEUCOVORIN
     Indication: Disease recurrence
     Dosage: 15 MG, DOSAGE FORM: NOT SPECIFIED
     Route: 041
  14. LEUCOVORIN [Suspect]
     Active Substance: LEUCOVORIN
     Indication: Angiocentric lymphoma
  15. METHOTREXATE [Suspect]
     Active Substance: METHOTREXATE
     Indication: Disease recurrence
     Dosage: DOSAGE FORM: NOT SPECIFIED
     Route: 048
  16. METHOTREXATE [Suspect]
     Active Substance: METHOTREXATE
     Indication: Angiocentric lymphoma
  17. PEMBROLIZUMAB [Suspect]
     Active Substance: PEMBROLIZUMAB
     Indication: Disease recurrence
     Dosage: 100 MG, 1 EVERY 3 WEEKS
     Route: 065
  18. PEMBROLIZUMAB [Suspect]
     Active Substance: PEMBROLIZUMAB
     Indication: Angiocentric lymphoma
  19. PREDNISONE [Concomitant]
     Active Substance: PREDNISONE
     Indication: Drug therapy
     Dosage: DOSAGE FORM: NOT SPECIFIED
     Route: 065

REACTIONS (7)
  - Cancer fatigue [Not Recovered/Not Resolved]
  - Peripheral motor neuropathy [Not Recovered/Not Resolved]
  - Peripheral sensory neuropathy [Not Recovered/Not Resolved]
  - Therapy non-responder [Not Recovered/Not Resolved]
  - Neutropenia [Not Recovered/Not Resolved]
  - Nausea [Not Recovered/Not Resolved]
  - Thrombocytopenia [Not Recovered/Not Resolved]
